FAERS Safety Report 6220552-9 (Version None)
Quarter: 2009Q2

REPORT INFORMATION
  Report Type: 
  Country: None (occurrence: None)
  Receive Date: 20090610
  Receipt Date: 20090603
  Transmission Date: 20091009
  Serious: Yes (Hospitalization)
  Sender: FDA-Public Use
  Company Number: US-AMGEN-US345148

PATIENT
  Sex: Female

DRUGS (7)
  1. NPLATE [Suspect]
     Indication: IDIOPATHIC THROMBOCYTOPENIC PURPURA
  2. UNSPECIFIED ANTIHYPERTENSIVE AGENT [Concomitant]
  3. PRAVACHOL [Concomitant]
  4. PAMELOR [Concomitant]
  5. XANAX [Concomitant]
  6. PREVACID [Concomitant]
  7. POLYGAM S/D [Concomitant]

REACTIONS (8)
  - ARTHRALGIA [None]
  - DRUG INEFFECTIVE [None]
  - DYSGEUSIA [None]
  - FATIGUE [None]
  - GASTROOESOPHAGEAL REFLUX DISEASE [None]
  - MYALGIA [None]
  - PLATELET COUNT DECREASED [None]
  - PLATELET MORPHOLOGY ABNORMAL [None]
